FAERS Safety Report 9079781 (Version 2)
Quarter: 2013Q1

REPORT INFORMATION
  Report Type: Spontaneous
  Country: SE (occurrence: SE)
  Receive Date: 20130215
  Receipt Date: 20130328
  Transmission Date: 20140127
  Serious: Yes (Hospitalization)
  Sender: FDA-Public Use
  Company Number: SE-GLAXOSMITHKLINE-B0858047A

PATIENT
  Age: 54 Year
  Sex: Female

DRUGS (5)
  1. TROBALT [Suspect]
     Indication: EPILEPSY
     Dosage: 100MG PER DAY
     Route: 048
     Dates: start: 20121025, end: 20121211
  2. FOLACIN [Concomitant]
  3. BEHEPAN [Concomitant]
  4. PHENYTOIN [Concomitant]
  5. KEPPRA [Concomitant]

REACTIONS (6)
  - Weight decreased [Unknown]
  - Pyrexia [Unknown]
  - Vision blurred [Unknown]
  - Diarrhoea [Unknown]
  - Transaminases increased [Not Recovered/Not Resolved]
  - Anaemia [Unknown]
